FAERS Safety Report 19457770 (Version 1)
Quarter: 2021Q2

REPORT INFORMATION
  Report Type: Spontaneous
  Country: US (occurrence: US)
  Receive Date: 20210624
  Receipt Date: 20210624
  Transmission Date: 20210717
  Serious: No
  Sender: FDA-Public Use
  Company Number: US-PFIZER INC-2021611857

PATIENT
  Sex: Female
  Weight: 81.65 kg

DRUGS (1)
  1. DESVENLAFAXINE SUCCINATE MONOHYDRATE [Suspect]
     Active Substance: DESVENLAFAXINE SUCCINATE
     Indication: DEPRESSION
     Dosage: 50 MG, 1X/DAY
     Route: 048
     Dates: start: 2020, end: 2020

REACTIONS (4)
  - Agitation [Recovering/Resolving]
  - Irritability [Recovering/Resolving]
  - Weight fluctuation [Recovering/Resolving]
  - Negative thoughts [Recovering/Resolving]

NARRATIVE: CASE EVENT DATE: 2020
